FAERS Safety Report 15561703 (Version 1)
Quarter: 2018Q4

REPORT INFORMATION
  Report Type: Spontaneous
  Country: US (occurrence: US)
  Receive Date: 20181024
  Receipt Date: 20181024
  Transmission Date: 20190205
  Serious: Yes (Hospitalization)
  Sender: FDA-Public Use
  Company Number: None

PATIENT
  Age: 82 Year
  Sex: Female
  Weight: 89.81 kg

DRUGS (1)
  1. DALVANCE [Suspect]
     Active Substance: DALBAVANCIN
     Indication: CELLULITIS
     Dosage: ?          OTHER FREQUENCY:X 1;?
     Route: 042
     Dates: start: 20180913

REACTIONS (3)
  - Infusion related reaction [None]
  - Cyanosis [None]
  - Presyncope [None]

NARRATIVE: CASE EVENT DATE: 20180913
